FAERS Safety Report 25534847 (Version 1)
Quarter: 2025Q3

REPORT INFORMATION
  Report Type: Spontaneous
  Country: EU (occurrence: EU)
  Receive Date: 20250709
  Receipt Date: 20250709
  Transmission Date: 20251020
  Serious: Yes (Other)
  Sender: PFIZER
  Company Number: EU-ABBVIE-6334861

PATIENT
  Age: 55 Year

DRUGS (3)
  1. COMIRNATY (TOZINAMERAN) [Suspect]
     Active Substance: TOZINAMERAN
     Indication: COVID-19 immunisation
     Route: 042
  2. ADALIMUMAB [Suspect]
     Active Substance: ADALIMUMAB
     Route: 058
  3. UPADACITINIB [Suspect]
     Active Substance: UPADACITINIB
     Route: 048

REACTIONS (20)
  - Polyarthritis [Not Recovered/Not Resolved]
  - Whipple^s disease [Unknown]
  - Rheumatoid arthritis [Unknown]
  - Anosmia [Unknown]
  - Cough [Unknown]
  - General symptom [Unknown]
  - Weight decreased [Unknown]
  - Hypogeusia [Unknown]
  - Inflammatory pain [Recovered/Resolved]
  - Inflammation [Recovered/Resolved]
  - Back pain [Recovered/Resolved]
  - Arthralgia [Unknown]
  - Arthritis [Unknown]
  - Hepatitis A [Unknown]
  - Toxoplasmosis [Unknown]
  - Sacroiliitis [Unknown]
  - Depression [Unknown]
  - Night sweats [Unknown]
  - Pyrexia [Unknown]
  - Incorrect route of product administration [Unknown]

NARRATIVE: CASE EVENT DATE: 20211001
